FAERS Safety Report 10682662 (Version 2)
Quarter: 2015Q1

REPORT INFORMATION
  Report Type: Spontaneous
  Country: US (occurrence: None)
  Receive Date: 20141224
  Receipt Date: 20150210
  Transmission Date: 20150720
  Serious: Yes (Other)
  Sender: FDA-Public Use
  Company Number: US-001348N

PATIENT
  Age: 68 Year
  Sex: Female

DRUGS (4)
  1. GATTEX [Suspect]
     Active Substance: TEDUGLUTIDE\WATER
     Indication: SHORT-BOWEL SYNDROME
     Route: 058
     Dates: start: 201409
  2. ELECTROLYTE SOLUTIONS [Concomitant]
     Active Substance: UNSPECIFIED INGREDIENT
  3. SOLUTIONS FOR PARENTERAL NUTRITION [Concomitant]
     Active Substance: AMINO ACIDS\DEXTROSE\ELECTROLYTES NOS
  4. CODEINE SODIUM BICARBONATE [Concomitant]

REACTIONS (14)
  - Blood pressure increased [None]
  - Headache [None]
  - Injection site bruising [None]
  - Syncope [None]
  - Nausea [None]
  - Injection site urticaria [None]
  - Flatulence [None]
  - Weight increased [None]
  - Chills [None]
  - Intestinal obstruction [None]
  - Insomnia [None]
  - Body temperature increased [None]
  - Muscle spasms [None]
  - Loss of consciousness [None]

NARRATIVE: CASE EVENT DATE: 20140930
